FAERS Safety Report 12890597 (Version 2)
Quarter: 2019Q2

REPORT INFORMATION
  Report Type: Spontaneous
  Country: US (occurrence: US)
  Receive Date: 20161027
  Receipt Date: 20190528
  Transmission Date: 20190711
  Serious: No
  Sender: FDA-Public Use
  Company Number: US-JAZZ-2016-US-015704

PATIENT
  Sex: Female

DRUGS (42)
  1. XYREM [Suspect]
     Active Substance: SODIUM OXYBATE
     Dosage: 3.75 G, BID
     Route: 048
     Dates: start: 201603
  2. CYMBALTA [Concomitant]
     Active Substance: DULOXETINE HYDROCHLORIDE
  3. ZANAFLEX [Concomitant]
     Active Substance: TIZANIDINE HYDROCHLORIDE
  4. HYDROCHLOROTHIAZIDE. [Concomitant]
     Active Substance: HYDROCHLOROTHIAZIDE
  5. XYREM [Suspect]
     Active Substance: SODIUM OXYBATE
     Indication: FIBROMYALGIA
     Dosage: DOSE ADJUSTMENTS
     Route: 048
     Dates: start: 200808, end: 201603
  6. ACZONE [Concomitant]
     Active Substance: DAPSONE
  7. DHA [Concomitant]
     Active Substance: DIETARY SUPPLEMENT
  8. Q-10 CO-ENZYME [Concomitant]
  9. RESTASIS [Concomitant]
     Active Substance: CYCLOSPORINE
  10. CHONDROITIN SULFATE W/GLUCOSAMINE [Concomitant]
  11. LUNESTA [Concomitant]
     Active Substance: ESZOPICLONE
  12. PREMARIN [Concomitant]
     Active Substance: ESTROGENS, CONJUGATED
  13. VITAMIN B12 [Concomitant]
     Active Substance: CYANOCOBALAMIN
  14. FLUTICASONE PROPIONATE. [Concomitant]
     Active Substance: FLUTICASONE PROPIONATE
  15. BUDESONIDE. [Concomitant]
     Active Substance: BUDESONIDE
  16. COLECALCIFEROL [Concomitant]
     Active Substance: CHOLECALCIFEROL
  17. LYRICA [Concomitant]
     Active Substance: PREGABALIN
  18. COENZYME Q10 [Concomitant]
     Active Substance: UBIDECARENONE
  19. XYREM [Suspect]
     Active Substance: SODIUM OXYBATE
     Indication: NARCOLEPSY
     Dosage: 2.25 G, BID
     Route: 048
     Dates: start: 200807, end: 200807
  20. JUBLIA [Concomitant]
     Active Substance: EFINACONAZOLE
  21. LISINOPRIL. [Concomitant]
     Active Substance: LISINOPRIL
  22. VESICARE [Concomitant]
     Active Substance: SOLIFENACIN SUCCINATE
  23. CORTISONE ACETATE. [Concomitant]
     Active Substance: CORTISONE ACETATE
  24. LEVOCARNITINE. [Concomitant]
     Active Substance: LEVOCARNITINE
  25. PATADAY [Concomitant]
     Active Substance: OLOPATADINE HYDROCHLORIDE
  26. REQUIP [Concomitant]
     Active Substance: ROPINIROLE HYDROCHLORIDE
  27. OXYCODONE HYDROCHLORIDE. [Concomitant]
     Active Substance: OXYCODONE HYDROCHLORIDE
  28. NORCO [Concomitant]
     Active Substance: ACETAMINOPHEN\HYDROCODONE BITARTRATE
  29. TOPROL XL [Concomitant]
     Active Substance: METOPROLOL SUCCINATE
  30. IPRATROPIUM BROMIDE. [Concomitant]
     Active Substance: IPRATROPIUM BROMIDE
  31. NASONEX [Concomitant]
     Active Substance: MOMETASONE FUROATE
  32. FOLIC ACID. [Concomitant]
     Active Substance: FOLIC ACID
  33. CALCIUM [Concomitant]
     Active Substance: CALCIUM
  34. PRAVASTATIN SODIUM. [Concomitant]
     Active Substance: PRAVASTATIN SODIUM
  35. TRULICITY [Concomitant]
     Active Substance: DULAGLUTIDE
  36. GLIMEPIRIDE. [Concomitant]
     Active Substance: GLIMEPIRIDE
  37. FISH OIL [Concomitant]
     Active Substance: FISH OIL
  38. PERCOCET [Concomitant]
     Active Substance: ACETAMINOPHEN\OXYCODONE HYDROCHLORIDE
  39. FERROUS SULFATE. [Concomitant]
     Active Substance: FERROUS SULFATE
  40. CEFUROXIME AXETIL. [Concomitant]
     Active Substance: CEFUROXIME AXETIL
  41. CREON [Concomitant]
     Active Substance: PANCRELIPASE AMYLASE\PANCRELIPASE LIPASE\PANCRELIPASE PROTEASE
  42. MODAFINIL. [Concomitant]
     Active Substance: MODAFINIL

REACTIONS (3)
  - Neck pain [Unknown]
  - Hepatic enzyme abnormal [Recovered/Resolved]
  - Cystitis [Unknown]
